FAERS Safety Report 22226363 (Version 1)
Quarter: 2023Q2

REPORT INFORMATION
  Report Type: Report from Study
  Country: US (occurrence: US)
  Receive Date: 20230419
  Receipt Date: 20230419
  Transmission Date: 20230722
  Serious: No
  Sender: FDA-Public Use
  Company Number: US-002147023-NVSC2023US088675

PATIENT
  Sex: Female

DRUGS (2)
  1. TRIAMCINOLONE [Suspect]
     Active Substance: TRIAMCINOLONE
     Indication: Psoriasis
     Dosage: 0.1 %, BID
     Route: 061
  2. CICLOPIROX OLAMINE [Suspect]
     Active Substance: CICLOPIROX OLAMINE
     Indication: Psoriasis
     Dosage: 1 %, OTHER (3 TIMES A DAY PER WEEK)
     Route: 065

REACTIONS (5)
  - Depressive symptom [Unknown]
  - Pruritus [Unknown]
  - Rash [Unknown]
  - Product use in unapproved indication [Unknown]
  - Drug ineffective [Unknown]
